FAERS Safety Report 21967225 (Version 1)
Quarter: 2023Q1

REPORT INFORMATION
  Report Type: Spontaneous
  Country: US (occurrence: US)
  Receive Date: 20230208
  Receipt Date: 20230208
  Transmission Date: 20230418
  Serious: No
  Sender: FDA-Public Use
  Company Number: US-SANOFI-01474957

PATIENT
  Age: 4 Month
  Sex: Male

DRUGS (1)
  1. MYOZYME [Suspect]
     Active Substance: ALGLUCOSIDASE ALFA
     Dosage: UNK
     Route: 065

REACTIONS (7)
  - Nasopharyngitis [Unknown]
  - Underweight [Unknown]
  - Somnolence [Unknown]
  - Secretion discharge [Unknown]
  - Weight decreased [Unknown]
  - Nasal congestion [Unknown]
  - Cough [Unknown]
